FAERS Safety Report 9136054 (Version 1)
Quarter: 2013Q1

REPORT INFORMATION
  Report Type: Spontaneous
  Country: US (occurrence: US)
  Receive Date: 20130304
  Receipt Date: 20130304
  Transmission Date: 20140127
  Serious: No
  Sender: FDA-Public Use
  Company Number: US-ABBOTT-12P-163-1014249-00

PATIENT
  Sex: Male
  Weight: 93.07 kg

DRUGS (4)
  1. ANDROGEL [Suspect]
     Indication: BLOOD TESTOSTERONE DECREASED
     Route: 061
     Dates: start: 201208, end: 201209
  2. ANDROGEL [Suspect]
     Route: 061
     Dates: start: 201209, end: 201210
  3. ANDROGEL [Suspect]
     Route: 061
     Dates: start: 201210
  4. LOTREL [Concomitant]
     Indication: HYPERTENSION

REACTIONS (5)
  - Dermal absorption impaired [Not Recovered/Not Resolved]
  - Erectile dysfunction [Not Recovered/Not Resolved]
  - Androgen deficiency [Not Recovered/Not Resolved]
  - Blood testosterone decreased [Unknown]
  - Loss of libido [Not Recovered/Not Resolved]
